FAERS Safety Report 9095535 (Version 1)
Quarter: 2013Q1

REPORT INFORMATION
  Report Type: Spontaneous
  Country: TW (occurrence: TW)
  Receive Date: 20130219
  Receipt Date: 20130219
  Transmission Date: 20140127
  Serious: Yes (Hospitalization)
  Sender: FDA-Public Use
  Company Number: PHHY2013TW014042

PATIENT
  Age: 64 Year
  Sex: Male

DRUGS (3)
  1. OXALIPLATIN [Suspect]
     Indication: COLON CANCER METASTATIC
  2. 5 FLUORO URACIL [Concomitant]
     Indication: COLON CANCER METASTATIC
  3. FOLINIC ACID [Concomitant]
     Indication: COLON CANCER METASTATIC

REACTIONS (8)
  - Hyperammonaemic encephalopathy [Recovering/Resolving]
  - Heart rate abnormal [Unknown]
  - Loss of consciousness [Unknown]
  - Ammonia increased [Unknown]
  - Cyanosis [Unknown]
  - Coma [Unknown]
  - Aspartate aminotransferase increased [Unknown]
  - Alanine aminotransferase increased [Unknown]
